FAERS Safety Report 25236518 (Version 2)
Quarter: 2025Q2

REPORT INFORMATION
  Report Type: Spontaneous
  Country: US (occurrence: US)
  Receive Date: 20250424
  Receipt Date: 20250507
  Transmission Date: 20250717
  Serious: No
  Sender: PFIZER
  Company Number: US-PFIZER INC-202500086630

PATIENT
  Age: 81 Year
  Sex: Female

DRUGS (2)
  1. IBRANCE [Suspect]
     Active Substance: PALBOCICLIB
     Indication: Breast cancer female
     Dosage: 125 MG ONCE DAILY
     Dates: start: 20250304
  2. PROBIOTICS NOS [Concomitant]
     Active Substance: PROBIOTICS NOS

REACTIONS (8)
  - Muscle spasms [Recovered/Resolved]
  - Dizziness [Recovered/Resolved]
  - Nausea [Recovered/Resolved]
  - Chills [Recovered/Resolved]
  - Gastritis [Recovered/Resolved]
  - Abdominal pain upper [Recovered/Resolved]
  - Tremor [Recovered/Resolved]
  - Constipation [Recovered/Resolved]

NARRATIVE: CASE EVENT DATE: 20250101
